FAERS Safety Report 9654957 (Version 1)
Quarter: 2013Q4

REPORT INFORMATION
  Report Type: Spontaneous
  Country: US (occurrence: US)
  Receive Date: 20131029
  Receipt Date: 20131029
  Transmission Date: 20140711
  Serious: No
  Sender: FDA-Public Use
  Company Number: US-PURDUE-USA-2012-0091880

PATIENT
  Sex: Male

DRUGS (1)
  1. OXYCONTIN (NDA 22-272) [Suspect]
     Indication: PAIN
     Dosage: 40 MG, BID
     Dates: start: 2008

REACTIONS (5)
  - Breakthrough pain [Unknown]
  - Drug ineffective [Unknown]
  - Diarrhoea [Unknown]
  - Product solubility abnormal [Unknown]
  - Product physical issue [Unknown]
